FAERS Safety Report 15963851 (Version 10)
Quarter: 2019Q3

REPORT INFORMATION
  Report Type: Report from Study
  Country: US (occurrence: US)
  Receive Date: 20190214
  Receipt Date: 20190808
  Transmission Date: 20191004
  Serious: Yes (Hospitalization, Other)
  Sender: FDA-Public Use
  Company Number: US-ACTELION-A-US2019-186124

PATIENT
  Sex: Male
  Weight: 83.9 kg

DRUGS (5)
  1. UPTRAVI [Suspect]
     Active Substance: SELEXIPAG
     Indication: PULMONARY ARTERIAL HYPERTENSION
     Dosage: 1600 MCG,BID
     Route: 048
  2. UPTRAVI [Suspect]
     Active Substance: SELEXIPAG
     Dosage: 800 MCG, BID
     Route: 048
  3. OPSUMIT [Suspect]
     Active Substance: MACITENTAN
     Indication: PULMONARY ARTERIAL HYPERTENSION
     Dosage: 10 MG, QD
     Route: 048
  4. TADALAFIL. [Concomitant]
     Active Substance: TADALAFIL
  5. UPTRAVI [Suspect]
     Active Substance: SELEXIPAG
     Dosage: 1200 MCG, BID
     Route: 048

REACTIONS (20)
  - Staphylococcal infection [Unknown]
  - Product dose omission [Unknown]
  - Myalgia [Unknown]
  - Dizziness [Unknown]
  - Productive cough [Unknown]
  - Pain in extremity [Unknown]
  - Fatigue [Unknown]
  - Hypotension [Unknown]
  - Haemoglobin decreased [Unknown]
  - Sepsis [Unknown]
  - Headache [Unknown]
  - Vision blurred [Unknown]
  - Peripheral swelling [Unknown]
  - Pyrexia [Unknown]
  - Dialysis [Unknown]
  - Fluid overload [Unknown]
  - Dyspnoea [Unknown]
  - Heart rate increased [Unknown]
  - Anaemia [Unknown]
  - Therapy non-responder [Unknown]
